FAERS Safety Report 9226414 (Version 3)
Quarter: 2013Q2

REPORT INFORMATION
  Report Type: Spontaneous
  Country: FR (occurrence: FR)
  Receive Date: 20130411
  Receipt Date: 20130426
  Transmission Date: 20140414
  Serious: Yes (Life-Threatening, Other)
  Sender: FDA-Public Use
  Company Number: FR-BIOMARINAP-FR-2013-100607

PATIENT
  Age: 3 Year
  Sex: Female
  Weight: 17 kg

DRUGS (4)
  1. ALDURAZYME [Suspect]
     Indication: MUCOPOLYSACCHARIDOSIS I
     Dosage: UNK, QW
     Route: 042
     Dates: start: 20120930
  2. ATARAX                             /00058401/ [Concomitant]
     Indication: PREMEDICATION
     Dosage: 17 MG, UNK
  3. DOLIPRANE [Concomitant]
     Indication: PREMEDICATION
     Dosage: UNK
  4. POLARAMINE [Concomitant]
     Indication: PREMEDICATION
     Route: 042

REACTIONS (11)
  - Anaphylactic shock [Recovered/Resolved]
  - Agitation [Unknown]
  - Aggression [Unknown]
  - Gastroenteritis [Unknown]
  - Pyrexia [Recovered/Resolved]
  - Tachycardia [Recovered/Resolved]
  - Hypertension [Recovered/Resolved]
  - Chills [Recovered/Resolved]
  - Cyanosis [Recovered/Resolved]
  - Psychomotor hyperactivity [Unknown]
  - Pyrexia [Unknown]
